FAERS Safety Report 5609204-3 (Version None)
Quarter: 2008Q1

REPORT INFORMATION
  Report Type: 
  Country: None (occurrence: None)
  Receive Date: 20080130
  Receipt Date: 20080130
  Transmission Date: 20080703
  Serious: Yes (Other)
  Sender: FDA-Public Use
  Company Number: None

PATIENT
  Age: 56 Year
  Sex: Male
  Weight: 87.9978 kg

DRUGS (2)
  1. CYMBALTA [Suspect]
     Indication: DEPRESSION
     Dosage: 60MG 1X PO, CURRENTLY TITRATING DOSE
     Route: 048
     Dates: start: 20060415, end: 20080128
  2. CYMBALTA [Suspect]
     Indication: NEURALGIA
     Dosage: 60MG 1X PO, CURRENTLY TITRATING DOSE
     Route: 048
     Dates: start: 20060415, end: 20080128

REACTIONS (4)
  - ABDOMINAL DISTENSION [None]
  - ABDOMINAL PAIN UPPER [None]
  - IMPAIRED GASTRIC EMPTYING [None]
  - NAUSEA [None]
